FAERS Safety Report 15314078 (Version 1)
Quarter: 2018Q3

REPORT INFORMATION
  Report Type: Spontaneous
  Country: BE (occurrence: BE)
  Receive Date: 20180824
  Receipt Date: 20180824
  Transmission Date: 20181010
  Serious: Yes (Life-Threatening, Other)
  Sender: FDA-Public Use
  Company Number: BE-ACCORD-070958

PATIENT
  Age: 47 Year
  Sex: Female

DRUGS (2)
  1. CISPLATIN. [Suspect]
     Active Substance: CISPLATIN
     Indication: ENDOMETRIAL CANCER METASTATIC
     Dosage: THREE WEEKLY, 80 MG/D, D1
     Route: 042
  2. ETOPOSIDE. [Suspect]
     Active Substance: ETOPOSIDE
     Indication: ENDOMETRIAL CANCER METASTATIC
     Dosage: THREE WEEKLY, 100 MG/D, D1?D3
     Route: 042

REACTIONS (9)
  - Anaemia [Unknown]
  - Tumour lysis syndrome [Unknown]
  - Renal failure [Unknown]
  - Nausea [Unknown]
  - Vomiting [Unknown]
  - Neutropenia [Unknown]
  - Thrombocytopenia [Unknown]
  - Alopecia [Unknown]
  - Off label use [Unknown]
